FAERS Safety Report 23779159 (Version 1)
Quarter: 2024Q2

REPORT INFORMATION
  Report Type: Spontaneous
  Country: JP (occurrence: JP)
  Receive Date: 20240424
  Receipt Date: 20240424
  Transmission Date: 20240716
  Serious: Yes (Other)
  Sender: FDA-Public Use
  Company Number: JP-BAXTER-2024BAX017096

PATIENT
  Age: 42 Year
  Sex: Female

DRUGS (8)
  1. DOXORUBICIN [Suspect]
     Active Substance: DOXORUBICIN
     Indication: Triple negative breast cancer
     Dosage: DDAC (60 MG/M2 DAY1, 2-WEEK CYCLE)?4 CYCLES
     Route: 065
     Dates: start: 201908
  2. CYCLOPHOSPHAMIDE [Suspect]
     Active Substance: CYCLOPHOSPHAMIDE
     Indication: Triple negative breast cancer
     Dosage: DDAC (600 MG/M2 DAY1, 2-WEEK CYCLE)?4 CYCLES
     Route: 065
     Dates: start: 201908
  3. DEXAMETHASONE [Suspect]
     Active Substance: DEXAMETHASONE
     Indication: Antiemetic supportive care
     Dosage: 9.9MG/BODY DAY1
     Route: 042
     Dates: start: 2019
  4. DEXAMETHASONE [Suspect]
     Active Substance: DEXAMETHASONE
     Dosage: 8MG/BODY DAY2-4
     Route: 048
     Dates: start: 2019
  5. APREPITANT [Suspect]
     Active Substance: APREPITANT
     Indication: Antiemetic supportive care
     Dosage: 125MG/BODY DAY1
     Route: 065
     Dates: start: 2019
  6. APREPITANT [Suspect]
     Active Substance: APREPITANT
     Dosage: 80MG/BODY DAY 2-3
     Route: 048
     Dates: start: 2019
  7. GRANISETRON [Suspect]
     Active Substance: GRANISETRON
     Indication: Antiemetic supportive care
     Dosage: 3 MG/BODY, DAY1
     Route: 042
     Dates: start: 2019
  8. PACLITAXEL [Concomitant]
     Active Substance: PACLITAXEL
     Indication: Triple negative breast cancer
     Dosage: DDPTX (175 MG/M2 DAY1, 2-WEEK CYCLE)?4 CYCLES
     Route: 065
     Dates: start: 2019

REACTIONS (3)
  - Pancreatitis acute [Recovered/Resolved]
  - Abdominal pain upper [Recovered/Resolved]
  - Pancreatic enzymes increased [Recovered/Resolved]
